FAERS Safety Report 5672724-X (Version None)
Quarter: 2008Q1

REPORT INFORMATION
  Report Type: 
  Country: None (occurrence: None)
  Receive Date: 20080319
  Receipt Date: 20070222
  Transmission Date: 20080703
  Serious: No
  Sender: FDA-Public Use
  Company Number: US-KINGPHARMUSA00001-K200700209

PATIENT
  Sex: Female
  Weight: 63.492 kg

DRUGS (2)
  1. ALTACE [Suspect]
     Indication: HYPERTENSION
     Dosage: 5 MG, BID
     Route: 048
     Dates: start: 20061101
  2. XANAX [Suspect]
     Indication: ANXIETY
     Dosage: UNK, PRN UP TO TID
     Route: 048
     Dates: start: 20070201

REACTIONS (6)
  - ASTHENIA [None]
  - BURNING SENSATION [None]
  - GINGIVAL PAIN [None]
  - HYPOAESTHESIA [None]
  - LIP SWELLING [None]
  - RASH [None]
